FAERS Safety Report 6660434-1 (Version None)
Quarter: 2010Q1

REPORT INFORMATION
  Report Type: 
  Country: None (occurrence: None)
  Receive Date: 20100331
  Receipt Date: 20100324
  Transmission Date: 20100710
  Serious: Yes (Other)
  Sender: FDA-Public Use
  Company Number: DE-ELI_LILLY_AND_COMPANY-DE201002006946

PATIENT
  Age: 73 Year
  Sex: Male

DRUGS (8)
  1. HUMULIN R [Suspect]
     Indication: DIABETES MELLITUS
     Route: 058
     Dates: end: 20100101
  2. AMARYL [Concomitant]
  3. METOPROLOL SUCCINATE [Concomitant]
  4. RAMIPRIL [Concomitant]
  5. DIGIMERCK [Concomitant]
  6. LOVASTATIN [Concomitant]
  7. ASPIRIN [Concomitant]
  8. CLOPIDOGREL [Concomitant]

REACTIONS (7)
  - CHOLANGIOADENOMA [None]
  - CORONARY ARTERY STENOSIS [None]
  - RENAL ABSCESS [None]
  - RENAL CELL CARCINOMA [None]
  - SEPSIS [None]
  - STENT EMBOLISATION [None]
  - WEIGHT DECREASED [None]
